FAERS Safety Report 9315332 (Version 4)
Quarter: 2013Q3

REPORT INFORMATION
  Report Type: Spontaneous
  Country: US (occurrence: US)
  Receive Date: 20130529
  Receipt Date: 20130724
  Transmission Date: 20140515
  Serious: Yes (Hospitalization, Other)
  Sender: FDA-Public Use
  Company Number: US-ROCHE-735616

PATIENT
  Sex: Female
  Weight: 99.8 kg

DRUGS (2)
  1. ACCUTANE [Suspect]
     Indication: ACNE
     Route: 065
     Dates: start: 19960101, end: 19970101
  2. ACCUTANE [Suspect]
     Route: 065
     Dates: start: 199806, end: 199902

REACTIONS (8)
  - Crohn^s disease [Unknown]
  - Gastrointestinal injury [Unknown]
  - Inflammatory bowel disease [Unknown]
  - Anal fissure [Unknown]
  - Diverticulitis [Unknown]
  - Perirectal abscess [Unknown]
  - Anal stenosis [Unknown]
  - Depression [Unknown]
